FAERS Safety Report 8421625-2 (Version None)
Quarter: 2012Q2

REPORT INFORMATION
  Report Type: 
  Country: None (occurrence: None)
  Receive Date: 20120601
  Receipt Date: 20120518
  Transmission Date: 20120825
  Serious: Yes (Other)
  Sender: FDA-Public Use
  Company Number: 2012MA006429

PATIENT
  Age: 47 Year
  Sex: Male

DRUGS (1)
  1. RAMIPRIL [Suspect]

REACTIONS (2)
  - HAEMORRHOIDS [None]
  - CONSTIPATION [None]
